FAERS Safety Report 4505758-9 (Version None)
Quarter: 2004Q4

REPORT INFORMATION
  Report Type: 
  Country: None (occurrence: None)
  Receive Date: 20041025
  Receipt Date: 20040604
  Transmission Date: 20050328
  Serious: Yes (Hospitalization)
  Sender: FDA-Public Use
  Company Number: US-JNJFOC-20040103618

PATIENT
  Age: 29 Year
  Sex: Male
  Weight: 96.1626 kg

DRUGS (1)
  1. REMICADE [Suspect]
     Indication: CROHN'S DISEASE
     Dosage: INTRAVENOUS
     Route: 042

REACTIONS (6)
  - ARTHRALGIA [None]
  - COLONIC STENOSIS [None]
  - FOOD ALLERGY [None]
  - INTESTINAL OBSTRUCTION [None]
  - RASH [None]
  - UNEVALUABLE EVENT [None]
